FAERS Safety Report 8835356 (Version 1)
Quarter: 2012Q4

REPORT INFORMATION
  Report Type: 
  Country: US (occurrence: US)
  Receive Date: 20121011
  Receipt Date: 20121011
  Transmission Date: 20130627
  Serious: No
  Sender: FDA-Public Use
  Company Number: US-BAYER-2012-103510

PATIENT
  Sex: Female

DRUGS (4)
  1. CIPRO [Suspect]
     Indication: URINARY TRACT INFECTION
  2. CIPRO [Suspect]
     Indication: VAGINAL INFECTION
  3. ANTIBIOTICS [Concomitant]
  4. IUD NOS [Concomitant]

REACTIONS (1)
  - Tendonitis [None]
